FAERS Safety Report 7543436-2 (Version None)
Quarter: 2011Q2

REPORT INFORMATION
  Report Type: 
  Country: None (occurrence: None)
  Receive Date: 20110613
  Receipt Date: 20110603
  Transmission Date: 20111010
  Serious: Yes (Hospitalization)
  Sender: FDA-Public Use
  Company Number: US-ABBOTT-10P-163-0683831-00

PATIENT
  Age: 63 Year
  Sex: Male
  Weight: 88.984 kg

DRUGS (7)
  1. PREDNISONE [Concomitant]
     Indication: ANALGESIC THERAPY
     Route: 048
     Dates: start: 20100726, end: 20101022
  2. METHOTREXATE [Concomitant]
     Indication: ANTIINFLAMMATORY THERAPY
     Route: 048
     Dates: start: 20100802, end: 20101119
  3. METHOTREXATE [Suspect]
     Indication: RHEUMATOID ARTHRITIS
     Route: 048
     Dates: start: 20101018
  4. HUMIRA [Suspect]
     Indication: RHEUMATOID ARTHRITIS
     Route: 058
     Dates: start: 20101018, end: 20101101
  5. HYDROCODONE BITARTRATE AND ACETAMINOPHEN [Concomitant]
     Route: 048
     Dates: start: 20101013, end: 20101119
  6. HYDROCODONE BITARTRATE AND ACETAMINOPHEN [Concomitant]
     Indication: ANALGESIC THERAPY
     Route: 048
     Dates: start: 20100727, end: 20101013
  7. PREDNISONE [Concomitant]
     Indication: INFLAMMATION

REACTIONS (1)
  - COLITIS ISCHAEMIC [None]
